FAERS Safety Report 23035218 (Version 1)
Quarter: 2023Q4

REPORT INFORMATION
  Report Type: Spontaneous
  Country: PL (occurrence: PL)
  Receive Date: 20231005
  Receipt Date: 20231005
  Transmission Date: 20240110
  Serious: Yes (Hospitalization, Other)
  Sender: FDA-Public Use
  Company Number: PL-BAYER-2023A140187

PATIENT
  Age: 77 Year
  Sex: Female

DRUGS (11)
  1. XARELTO [Suspect]
     Active Substance: RIVAROXABAN
     Indication: Product used for unknown indication
     Dosage: 15 MG, QD
     Route: 048
  2. ASPIRIN [Suspect]
     Active Substance: ASPIRIN
     Dosage: 75 MG, QD
  3. PANTOPRAZOLE [Concomitant]
     Active Substance: PANTOPRAZOLE
     Dosage: 40 MG, QD
  4. DAPAGLIFLOZIN [Concomitant]
     Active Substance: DAPAGLIFLOZIN
     Dosage: 10 MG, QD
  5. BISOPROLOL [Concomitant]
     Active Substance: BISOPROLOL\BISOPROLOL FUMARATE
     Dosage: 10 MG, QD
  6. LISINOPRIL [Concomitant]
     Active Substance: LISINOPRIL
     Dosage: 20 MG, QD
  7. LACIDIPINE [Concomitant]
     Active Substance: LACIDIPINE
     Dosage: 4 MG
  8. TORSEMIDE [Concomitant]
     Active Substance: TORSEMIDE
     Dosage: 5 MG, QD
  9. ALLOPURINOL [Concomitant]
     Active Substance: ALLOPURINOL
     Dosage: 100 MG, QD
  10. EZETIMIBE [Concomitant]
     Active Substance: EZETIMIBE
     Dosage: 10 MG, QD
  11. ROSUVASTATIN [Concomitant]
     Active Substance: ROSUVASTATIN
     Dosage: 40 MG, QD

REACTIONS (3)
  - Blood pressure fluctuation [Unknown]
  - Angioplasty [Unknown]
  - Dizziness [Unknown]
